FAERS Safety Report 12425176 (Version 1)
Quarter: 2016Q2

REPORT INFORMATION
  Report Type: Spontaneous
  Country: US (occurrence: US)
  Receive Date: 20160601
  Receipt Date: 20160601
  Transmission Date: 20160815
  Serious: No
  Sender: FDA-Public Use
  Company Number: US-PFIZER INC-2016283747

PATIENT
  Age: 31 Year
  Sex: Female

DRUGS (4)
  1. MIRTAZAPINE. [Suspect]
     Active Substance: MIRTAZAPINE
  2. ALPRAZOLAM. [Suspect]
     Active Substance: ALPRAZOLAM
  3. IBUPROFEN. [Suspect]
     Active Substance: IBUPROFEN
  4. TRAZODONE [Suspect]
     Active Substance: TRAZODONE HYDROCHLORIDE

REACTIONS (1)
  - Drug hypersensitivity [Unknown]
